FAERS Safety Report 20638859 (Version 1)
Quarter: 2022Q1

REPORT INFORMATION
  Report Type: Spontaneous
  Country: US (occurrence: US)
  Receive Date: 20220325
  Receipt Date: 20220325
  Transmission Date: 20220423
  Serious: Yes (Other)
  Sender: FDA-Public Use
  Company Number: US-MALLINCKRODT-T202201299

PATIENT
  Sex: Female
  Weight: 89 kg

DRUGS (1)
  1. H.P. ACTHAR [Suspect]
     Active Substance: CORTICOTROPIN
     Indication: Rheumatoid arthritis
     Dosage: 80 UNITS, TWICE A WEEK
     Route: 058
     Dates: start: 202203

REACTIONS (5)
  - Rheumatoid arthritis [Not Recovered/Not Resolved]
  - Seizure [Unknown]
  - Blood pressure increased [Unknown]
  - Mobility decreased [Unknown]
  - Injection site discolouration [Unknown]
